FAERS Safety Report 5873809-5 (Version None)
Quarter: 2008Q3

REPORT INFORMATION
  Report Type: 
  Country: None (occurrence: None)
  Receive Date: 20080908
  Receipt Date: 20080829
  Transmission Date: 20090109
  Serious: Yes (Other)
  Sender: FDA-Public Use
  Company Number: US-ROCHE-584131

PATIENT
  Sex: Female

DRUGS (6)
  1. PEG-INTERFERON A-2A (RO 25-8310) [Suspect]
     Indication: HEPATITIS C
     Dosage: OTHER INDICATION REPORTED AS HIV.
     Route: 065
     Dates: start: 20080509, end: 20080829
  2. PEG-INTERFERON A-2A (RO 25-8310) [Suspect]
     Route: 065
  3. RIBAVIRIN [Suspect]
     Indication: HEPATITIS C
     Dosage: OTHER INDICATION REPORTED AS HIV.
     Route: 065
     Dates: start: 20080509, end: 20080829
  4. RIBAVIRIN [Suspect]
     Route: 065
  5. ZYPREXA [Concomitant]
  6. UNSPECIFIED DRUGS [Concomitant]
     Dosage: DRUG REPORTED AS: SEVERAL DRUGS FOR HIV.

REACTIONS (2)
  - DELIRIUM [None]
  - INCORRECT ROUTE OF DRUG ADMINISTRATION [None]
